FAERS Safety Report 7768113-4 (Version None)
Quarter: 2011Q3

REPORT INFORMATION
  Report Type: 
  Country: None (occurrence: None)
  Receive Date: 20110922
  Receipt Date: 20110915
  Transmission Date: 20111222
  Serious: Yes (Death, Other)
  Sender: FDA-Public Use
  Company Number: JP-BRISTOL-MYERS SQUIBB COMPANY-16058950

PATIENT
  Age: 61 Year
  Sex: Male
  Weight: 50 kg

DRUGS (9)
  1. ABILIFY [Suspect]
     Indication: SCHIZOPHRENIA
     Dosage: 15APR11-16APR11=2DAYS,21-22APR11=2DAYS,26-27AUG11=2DAYS
     Route: 048
     Dates: start: 20110415, end: 20110827
  2. SENNOSIDE [Concomitant]
     Dosage: TABS.
     Dates: start: 20100513, end: 20110827
  3. LEVOTOMIN [Concomitant]
     Dosage: TABS.
     Dates: start: 20110414, end: 20110827
  4. LODOPIN [Concomitant]
     Dosage: TABS.2AUG-18AUG
     Dates: start: 20110802, end: 20110822
  5. DIAZEPAM [Concomitant]
     Dosage: TABS.
     Dates: start: 20110604, end: 20110827
  6. ARTANE [Concomitant]
     Dosage: TABS.
     Dates: start: 20110812, end: 20110827
  7. NITRAZEPAM [Concomitant]
     Dosage: TABS
     Dates: start: 20100513, end: 20110827
  8. MAGMITT [Concomitant]
     Dosage: TABS.
     Dates: start: 20110812, end: 20110827
  9. LENDORMIN [Concomitant]
     Dosage: TABS.
     Dates: start: 20110827, end: 20110827

REACTIONS (1)
  - BLOOD GLUCOSE DECREASED [None]
